FAERS Safety Report 7334915-1 (Version None)
Quarter: 2011Q1

REPORT INFORMATION
  Report Type: 
  Country: None (occurrence: None)
  Receive Date: 20110307
  Receipt Date: 20110303
  Transmission Date: 20110831
  Serious: Yes (Hospitalization, Other)
  Sender: FDA-Public Use
  Company Number: BR-ABBOTT-11P-020-0699889-00

PATIENT
  Sex: Female
  Weight: 70 kg

DRUGS (1)
  1. HUMIRA [Suspect]
     Indication: RHEUMATOID ARTHRITIS
     Dates: start: 20081025

REACTIONS (9)
  - BLOOD CHOLESTEROL INCREASED [None]
  - IMMUNODEFICIENCY [None]
  - LIPOMA [None]
  - HYPOTENSION [None]
  - BLOOD GLUCOSE INCREASED [None]
  - MALAISE [None]
  - PYREXIA [None]
  - PNEUMONIA [None]
  - ARTHRITIS INFECTIVE [None]
